FAERS Safety Report 12633017 (Version 2)
Quarter: 2016Q3

REPORT INFORMATION
  Report Type: Spontaneous
  Country: US (occurrence: US)
  Receive Date: 20160808
  Receipt Date: 20160808
  Transmission Date: 20161109
  Serious: No
  Sender: FDA-Public Use
  Company Number: US-BEH-2016058100

PATIENT
  Sex: Female
  Weight: 61 kg

DRUGS (19)
  1. LIDOCAINE/PRILOCAINE [Concomitant]
     Active Substance: LIDOCAINE\PRILOCAINE
  2. CIPRO [Concomitant]
     Active Substance: CIPROFLOXACIN HYDROCHLORIDE
  3. HIZENTRA [Suspect]
     Active Substance: HUMAN IMMUNOGLOBULIN G
     Route: 058
  4. DOCUSATE [Concomitant]
     Active Substance: DOCUSATE
  5. HIZENTRA [Suspect]
     Active Substance: HUMAN IMMUNOGLOBULIN G
     Indication: IMMUNODEFICIENCY COMMON VARIABLE
     Route: 058
  6. HIZENTRA [Suspect]
     Active Substance: HUMAN IMMUNOGLOBULIN G
     Route: 058
  7. NORCO [Concomitant]
     Active Substance: ACETAMINOPHEN\HYDROCODONE BITARTRATE
  8. HYDROCODONE [Concomitant]
     Active Substance: HYDROCODONE
  9. FOSAMAX [Concomitant]
     Active Substance: ALENDRONATE SODIUM
  10. DIPHENHYDRAMINE. [Concomitant]
     Active Substance: DIPHENHYDRAMINE
  11. HIZENTRA [Suspect]
     Active Substance: HUMAN IMMUNOGLOBULIN G
     Dates: start: 20111109
  12. ADVIL [Concomitant]
     Active Substance: IBUPROFEN
  13. ALLEGRA [Concomitant]
     Active Substance: FEXOFENADINE HYDROCHLORIDE
  14. GLUCOSAMINE [Concomitant]
     Active Substance: GLUCOSAMINE
  15. EPIPEN [Concomitant]
     Active Substance: EPINEPHRINE
  16. LEVAQUIN [Concomitant]
     Active Substance: LEVOFLOXACIN
  17. PREMARIN [Concomitant]
     Active Substance: ESTROGENS, CONJUGATED
  18. FISH OIL [Concomitant]
     Active Substance: FISH OIL
  19. MULTIVITAMIN [Concomitant]
     Active Substance: VITAMINS

REACTIONS (1)
  - Nasopharyngitis [Unknown]
